FAERS Safety Report 15725686 (Version 2)
Quarter: 2018Q4

REPORT INFORMATION
  Report Type: Spontaneous
  Country: US (occurrence: US)
  Receive Date: 20181215
  Receipt Date: 20181221
  Transmission Date: 20190205
  Serious: No
  Sender: FDA-Public Use
  Company Number: US-JNJFOC-20181129495

PATIENT
  Sex: Female
  Weight: 390.1 kg

DRUGS (2)
  1. ACETAMINOPHEN CAPSULES [Suspect]
     Active Substance: ACETAMINOPHEN
     Indication: ARTHRITIS
     Dosage: ONE CAPLET ONE TIME
     Route: 048
  2. TYLENOL REGULAR STRENGTH [Suspect]
     Active Substance: ACETAMINOPHEN
     Indication: ARTHRITIS
     Dosage: ONE CAPLET ONE TIME
     Route: 048

REACTIONS (4)
  - Product administration error [Unknown]
  - Off label use [Unknown]
  - Pain [Recovered/Resolved]
  - Incorrect dose administered [Unknown]
